FAERS Safety Report 13139607 (Version 1)
Quarter: 2017Q1

REPORT INFORMATION
  Report Type: Spontaneous
  Country: US (occurrence: US)
  Receive Date: 20170123
  Receipt Date: 20170123
  Transmission Date: 20170428
  Serious: No
  Sender: FDA-Public Use
  Company Number: US-REGENERON PHARMACEUTICALS, INC.-2016-21519

PATIENT

DRUGS (5)
  1. METFORMIN [Suspect]
     Active Substance: METFORMIN HYDROCHLORIDE
     Dosage: 2000 MG MILLIGRAM(S), QD
     Dates: end: 20160803
  2. EYLEA [Suspect]
     Active Substance: AFLIBERCEPT
     Dosage: 2 MG MILLIGRAM(S), OS, SINGLE
     Dates: start: 20160916, end: 20160916
  3. EYLEA [Suspect]
     Active Substance: AFLIBERCEPT
     Indication: DIABETIC RETINOPATHY
     Dosage: 2 MG MILLIGRAM(S), MONTHLY EVERY OTHER EYE
     Dates: start: 2015
  4. EYLEA [Suspect]
     Active Substance: AFLIBERCEPT
     Indication: DIABETIC RETINAL OEDEMA
     Dosage: 2 MG MILLIGRAM(S), MONTHLY EVERY OTHER EYE
     Dates: start: 20160706, end: 20160706
  5. METFORMIN [Suspect]
     Active Substance: METFORMIN HYDROCHLORIDE
     Indication: TYPE 2 DIABETES MELLITUS
     Dosage: 500 MG MILLIGRAM(S), TID

REACTIONS (12)
  - Malaise [Unknown]
  - Diarrhoea [Recovering/Resolving]
  - Food poisoning [Unknown]
  - Hypersomnia [Unknown]
  - Drug dose omission [Recovered/Resolved]
  - Weight decreased [Unknown]
  - Anal incontinence [Recovering/Resolving]
  - Blood glucose increased [Recovering/Resolving]
  - Faeces discoloured [Not Recovered/Not Resolved]
  - Clostridium test positive [Unknown]
  - Fatigue [Unknown]
  - Nausea [Unknown]

NARRATIVE: CASE EVENT DATE: 2016
